FAERS Safety Report 8985175 (Version 2)
Quarter: 2013Q1

REPORT INFORMATION
  Report Type: Report from Study
  Country: GB (occurrence: GB)
  Receive Date: 20121226
  Receipt Date: 20130208
  Transmission Date: 20140127
  Serious: Yes (Hospitalization, Other)
  Sender: FDA-Public Use
  Company Number: GB-009507513-1207GBR006063

PATIENT
  Age: 7 Year
  Sex: Female
  Weight: 23.8 kg

DRUGS (27)
  1. BLINDED APREPITANT [Suspect]
     Indication: PROPHYLAXIS OF NAUSEA AND VOMITING
     Dosage: UNK
     Route: 048
     Dates: start: 20120710, end: 20120712
  2. BLINDED APREPITANT [Suspect]
     Indication: PROPHYLAXIS OF NAUSEA AND VOMITING
     Dosage: UNK
     Route: 048
     Dates: start: 20120710, end: 20120712
  3. BLINDED DEXAMETHASONE [Suspect]
     Indication: PROPHYLAXIS OF NAUSEA AND VOMITING
     Dosage: UNK
     Route: 048
     Dates: start: 20120710, end: 20120712
  4. BLINDED DEXAMETHASONE [Suspect]
     Indication: PROPHYLAXIS OF NAUSEA AND VOMITING
     Dosage: UNK
     Route: 048
     Dates: start: 20120710, end: 20120712
  5. BLINDED ONDANSETRON [Suspect]
     Indication: PROPHYLAXIS OF NAUSEA AND VOMITING
     Dosage: UNK
     Route: 048
     Dates: start: 20120710, end: 20120712
  6. BLINDED ONDANSETRON HCL [Suspect]
     Indication: PROPHYLAXIS OF NAUSEA AND VOMITING
     Dosage: UNK
     Route: 048
     Dates: start: 20120710, end: 20120712
  7. BLINDED PLACEBO [Suspect]
     Indication: PROPHYLAXIS OF NAUSEA AND VOMITING
     Dosage: UNK
     Route: 048
     Dates: start: 20120710, end: 20120712
  8. BLINDED POST TRIAL THERAPY [Suspect]
     Indication: PROPHYLAXIS OF NAUSEA AND VOMITING
     Dosage: UNK
     Route: 048
     Dates: start: 20120710, end: 20120712
  9. BLINDED PRE TRIAL THERAPY [Suspect]
     Indication: PROPHYLAXIS OF NAUSEA AND VOMITING
     Dosage: UNK
     Route: 048
     Dates: start: 20120710, end: 20120712
  10. ONDANSETRON [Suspect]
     Indication: PROPHYLAXIS OF NAUSEA AND VOMITING
     Dosage: 4 MG, QPM
     Route: 042
     Dates: start: 20120710, end: 20120710
  11. ONDANSETRON [Suspect]
     Dosage: 4 MG, BID
     Route: 042
     Dates: start: 20120711, end: 20120711
  12. ONDANSETRON [Suspect]
     Dosage: 4 MG, QAM
     Route: 042
     Dates: start: 20120712, end: 20120712
  13. ONDANSETRON [Suspect]
     Dosage: 5 MG, BID PM
     Route: 042
     Dates: start: 20120712, end: 20120712
  14. ONDANSETRON [Suspect]
     Dosage: 5 MG, BID
     Route: 042
     Dates: start: 20120713, end: 20120713
  15. ONDANSETRON [Suspect]
     Dosage: 5 MG, QID
     Route: 042
     Dates: start: 20120714, end: 20120714
  16. ONDANSETRON [Suspect]
     Dosage: 5 MG, BID
     Route: 042
     Dates: start: 20120715, end: 20120715
  17. DEXAMETHASONE [Suspect]
     Indication: PROPHYLAXIS OF NAUSEA AND VOMITING
     Dosage: 12 ML, ONCE
     Route: 042
     Dates: start: 20120710, end: 20120710
  18. DEXAMETHASONE [Suspect]
     Dosage: 4 ML, ONCE
     Route: 042
     Dates: start: 20120711, end: 20120711
  19. DEXAMETHASONE [Suspect]
     Dosage: 12 ML, QD
     Route: 042
     Dates: start: 20120712, end: 20120713
  20. METHOTREXATE SODIUM [Suspect]
     Indication: BONE SARCOMA
     Dosage: 10700 MG, ONCE
     Route: 042
     Dates: start: 20120807, end: 20120807
  21. LEVOMEPROMAZINE [Suspect]
     Indication: NAUSEA
     Dosage: 1.2 MG, PRN
     Route: 042
     Dates: start: 20120714, end: 20120714
  22. LEVOMEPROMAZINE [Suspect]
     Indication: VOMITING
  23. ACETAMINOPHEN [Concomitant]
     Indication: CENTRAL VENOUS CATHETERISATION
     Dosage: 115 MG, QID
     Route: 048
     Dates: start: 20120706, end: 20120709
  24. DIHYDROCODEINE [Concomitant]
     Indication: CENTRAL VENOUS CATHETERISATION
     Dosage: TOTAL DAILY DOSE 15MG, PRN
     Route: 048
     Dates: start: 20120706, end: 20120706
  25. LACTULOSE [Concomitant]
     Indication: CONSTIPATION
     Dosage: UNK ML, PRN
     Route: 048
     Dates: start: 20120709
  26. DOXORUBICIN [Concomitant]
     Indication: BONE SARCOMA
     Dosage: 33 MG, QD
     Route: 042
     Dates: start: 20120710, end: 20120712
  27. CISPLATIN [Concomitant]
     Indication: BONE SARCOMA
     Dosage: 36 MG, QD
     Route: 042
     Dates: start: 20120710, end: 20120713

REACTIONS (2)
  - Presyncope [Recovered/Resolved]
  - Mucosal inflammation [Recovered/Resolved]
